FAERS Safety Report 8723929 (Version 2)
Quarter: 2012Q4

REPORT INFORMATION
  Report Type: Spontaneous
  Country: None (occurrence: None)
  Receive Date: 20120727
  Receipt Date: 20121023
  Transmission Date: 20130627
  Serious: Yes (Death, Hospitalization, Other)
  Sender: FDA-Public Use
  Company Number: AUR-APL-2012-03120

PATIENT
  Age: 77 Year
  Sex: Male

DRUGS (1)
  1. AMOXICILLIN\CLAVULANATE POTASSIUM [Suspect]
     Indication: CHOLECYSTITIS
     Dosage: ORAL
     Route: 048
     Dates: start: 20120615, end: 20120622

REACTIONS (4)
  - Jaundice [None]
  - Myocardial ischaemia [None]
  - Jaundice cholestatic [None]
  - Hepatic failure [None]
